FAERS Safety Report 19911803 (Version 1)
Quarter: 2021Q4

REPORT INFORMATION
  Report Type: Spontaneous
  Country: US (occurrence: US)
  Receive Date: 20211002
  Receipt Date: 20211002
  Transmission Date: 20220303
  Serious: No
  Sender: FDA-Public Use
  Company Number: None

PATIENT
  Age: 46 Year
  Sex: Male
  Weight: 128.7 kg

DRUGS (1)
  1. LOTRIMIN DAILY PREVENTION DEO [Suspect]
     Active Substance: TOLNAFTATE
     Indication: Tinea pedis
     Dosage: APPLY
     Route: 061

REACTIONS (3)
  - Tinea pedis [None]
  - Condition aggravated [None]
  - Paradoxical drug reaction [None]
